FAERS Safety Report 22876214 (Version 12)
Quarter: 2024Q1

REPORT INFORMATION
  Report Type: Report from Study
  Country: CA (occurrence: CA)
  Receive Date: 20230829
  Receipt Date: 20240319
  Transmission Date: 20240410
  Serious: Yes (Other)
  Sender: FDA-Public Use
  Company Number: CA-LEO Pharma-349004

PATIENT
  Age: 50 Year
  Sex: Male

DRUGS (9)
  1. ADBRY [Suspect]
     Active Substance: TRALOKINUMAB-LDRM
     Indication: Dermatitis atopic
     Dosage: LOADING DOSE: 600MG SC; MAINTENANCE DOSE: 300MG SC EVERY 2 WEEKS; FORMAT: 150 MG/ML PRE-FILLED SYRIN
     Route: 058
     Dates: start: 20221207
  2. ADBRY [Suspect]
     Active Substance: TRALOKINUMAB-LDRM
     Indication: Dermatitis atopic
     Dosage: LOADING DOSE: 600MG SC; MAINTENANCE DOSE: 300MG SC EVERY 2 WEEKS; FORMAT: 150 MG/ML PRE-FILLED SYRIN
     Route: 058
     Dates: start: 20221207
  3. ADBRY [Suspect]
     Active Substance: TRALOKINUMAB-LDRM
     Indication: Dermatitis atopic
     Dosage: LOADING DOSE: 600MG SC; MAINTENANCE DOSE: 300MG SC EVERY 2 WEEKS; FORMAT: 150 MG/ML PRE-FILLED SYRIN
     Route: 058
     Dates: start: 20221207
  4. ADBRY [Suspect]
     Active Substance: TRALOKINUMAB-LDRM
     Indication: Dermatitis atopic
     Dosage: LOADING DOSE: 600MG SC; MAINTENANCE DOSE: 300MG SC EVERY 2 WEEKS; FORMAT: 150 MG/ML PRE-FILLED SYRIN
     Route: 058
     Dates: start: 20221207
  5. ADBRY [Suspect]
     Active Substance: TRALOKINUMAB-LDRM
     Indication: Dermatitis atopic
     Dosage: MAINTENANCE DOSE: 300MG SC EVERY 2 WEEKS; FORMAT: 150 MG/ML PRE-FILLED SYRINGE; TREATMENT IS ONGOING
     Route: 058
  6. ADBRY [Suspect]
     Active Substance: TRALOKINUMAB-LDRM
     Indication: Dermatitis atopic
     Dosage: MAINTENANCE DOSE: 300MG SC EVERY 2 WEEKS; FORMAT: 150 MG/ML PRE-FILLED SYRINGE; TREATMENT IS ONGOING
     Route: 058
  7. ADBRY [Suspect]
     Active Substance: TRALOKINUMAB-LDRM
     Indication: Dermatitis atopic
     Dosage: MAINTENANCE DOSE: 300MG SC EVERY 2 WEEKS; FORMAT: 150 MG/ML PRE-FILLED SYRINGE; TREATMENT IS ONGOING
     Route: 058
  8. ADBRY [Suspect]
     Active Substance: TRALOKINUMAB-LDRM
     Indication: Dermatitis atopic
     Dosage: MAINTENANCE DOSE: 300MG SC EVERY 2 WEEKS; FORMAT: 150 MG/ML PRE-FILLED SYRINGE; TREATMENT IS ONGOING
     Route: 058
  9. PREDNISONE [Concomitant]
     Active Substance: PREDNISONE
     Indication: Product used for unknown indication

REACTIONS (15)
  - Malaise [Not Recovered/Not Resolved]
  - Upper respiratory tract infection [Not Recovered/Not Resolved]
  - Malaise [Unknown]
  - Nasopharyngitis [Recovering/Resolving]
  - Pulmonary pain [Not Recovered/Not Resolved]
  - Headache [Not Recovered/Not Resolved]
  - Pyrexia [Not Recovered/Not Resolved]
  - Sinus congestion [Not Recovered/Not Resolved]
  - Respiratory disorder [Not Recovered/Not Resolved]
  - Illness [Not Recovered/Not Resolved]
  - Pneumonia [Recovering/Resolving]
  - Paranasal sinus discomfort [Not Recovered/Not Resolved]
  - Cough [Unknown]
  - Rhinorrhoea [Not Recovered/Not Resolved]
  - Lower respiratory tract infection [Unknown]

NARRATIVE: CASE EVENT DATE: 20230101
